FAERS Safety Report 18159741 (Version 1)
Quarter: 2020Q3

REPORT INFORMATION
  Report Type: Other
  Country: ES (occurrence: ES)
  Receive Date: 20200817
  Receipt Date: 20200817
  Transmission Date: 20201103
  Serious: Yes (Other)
  Sender: FDA-Public Use
  Company Number: ES-VALIDUS PHARMACEUTICALS LLC-ES-2020VAL000673

PATIENT

DRUGS (5)
  1. HIDROFEROL [Suspect]
     Active Substance: CALCIFEDIOL
     Dosage: FROM 05/FEB/2020 TO 09/JUL/2020 20 ORAL DROPS EVERY DAY.
     Route: 048
     Dates: start: 20180601, end: 20200709
  2. HIDROFEROL [Suspect]
     Active Substance: CALCIFEDIOL
     Indication: ANAEMIA
     Dosage: STRENGTH: 0,1 MG/ML 20 ML. FROM 01/JUN/2018 TO 24/JAN/2020 4 ORAL DROPS EVERY DAY.
     Route: 048
     Dates: start: 20180601, end: 20200709
  3. ROCALTROL [Suspect]
     Active Substance: CALCITRIOL
     Indication: HYPOPARATHYROIDISM
     Dosage: 1 DF, QD
     Route: 065
     Dates: start: 20190418, end: 20200720
  4. HIDROFEROL [Suspect]
     Active Substance: CALCIFEDIOL
     Dosage: FROM 24/JAN/2020 TO 05/FEB/2020 10 ORAL DROPS EVERY DAY.
     Route: 048
     Dates: start: 20180601, end: 20200709
  5. EUTIROX [Concomitant]
     Active Substance: LEVOTHYROXINE SODIUM
     Indication: POST PROCEDURAL HYPOTHYROIDISM
     Dosage: 1 DF, QD
     Dates: start: 20200205, end: 20200709

REACTIONS (3)
  - Hypervitaminosis D [Recovering/Resolving]
  - Hypercalcaemia [Recovering/Resolving]
  - Paraesthesia [Recovering/Resolving]

NARRATIVE: CASE EVENT DATE: 20200710
